FAERS Safety Report 7983592 (Version 5)
Quarter: 2013Q3

REPORT INFORMATION
  Report Type: Report from Study
  Country: US (occurrence: US)
  Receive Date: 20110609
  Receipt Date: 20130717
  Transmission Date: 20140515
  Serious: Yes (Hospitalization)
  Sender: FDA-Public Use
  Company Number: US-ACTELION-A-NJ2011-49715

PATIENT
  Age: 75 Year
  Sex: Female

DRUGS (2)
  1. TRACLEER [Suspect]
     Indication: PULMONARY ARTERIAL HYPERTENSION
     Dosage: UNK
     Route: 048
  2. TRACLEER [Suspect]
     Dosage: UNK
     Route: 048

REACTIONS (11)
  - Chronic obstructive pulmonary disease [Unknown]
  - Emphysema [Unknown]
  - Pulmonary fibrosis [Unknown]
  - Lung infection [Unknown]
  - Dyspnoea [Unknown]
  - Bronchitis [Unknown]
  - Pneumonia [Unknown]
  - Drug dose omission [Unknown]
  - Heart rate increased [Unknown]
  - Malaise [Unknown]
  - Asthenia [Unknown]
